FAERS Safety Report 20791126 (Version 1)
Quarter: 2022Q2

REPORT INFORMATION
  Report Type: Spontaneous
  Country: US (occurrence: None)
  Receive Date: 20220505
  Receipt Date: 20220505
  Transmission Date: 20220720
  Serious: Yes (Hospitalization)
  Sender: FDA-Public Use
  Company Number: None

PATIENT
  Age: 66 Year
  Sex: Female

DRUGS (1)
  1. CAPECITABINE [Suspect]
     Active Substance: CAPECITABINE
     Dosage: FREQUENCY : TWICE A DAY;?
     Route: 048
     Dates: start: 202110

REACTIONS (7)
  - Skin discolouration [None]
  - Peripheral swelling [None]
  - Peripheral swelling [None]
  - Fluid retention [None]
  - Stomatitis [None]
  - Palmar-plantar erythrodysaesthesia syndrome [None]
  - Therapy change [None]

NARRATIVE: CASE EVENT DATE: 20220305
